FAERS Safety Report 6724373-X (Version None)
Quarter: 2010Q2

REPORT INFORMATION
  Report Type: 
  Country: None (occurrence: None)
  Receive Date: 20100513
  Receipt Date: 20100430
  Transmission Date: 20101027
  Serious: Yes (Other)
  Sender: FDA-Public Use
  Company Number: PHHY2010AU24062

PATIENT
  Sex: Male

DRUGS (12)
  1. AFINITOR [Suspect]
     Indication: RENAL CELL CARCINOMA
     Dosage: 10 MG, DAILY
     Dates: start: 20100306, end: 20100322
  2. AFINITOR [Suspect]
     Dosage: 5 MG DAILY
     Route: 048
     Dates: start: 20100422
  3. PRAZOSIN HCL [Concomitant]
  4. DIAMICRON [Concomitant]
  5. PARACETAMOL [Concomitant]
     Dosage: 500 MG, 1-2 TABS QD
     Route: 048
  6. OXYCONTIN [Concomitant]
     Dosage: 10 MG, BID
  7. NITRAZEPAM [Concomitant]
     Dosage: 5 MG, QD
  8. TEMAZEPAM [Concomitant]
     Dosage: 1 TAB QD AT NIGHT
  9. KARVEZIDE [Concomitant]
     Dosage: 300/12.5MG, 1 TAB QD
     Route: 048
  10. GLICLAZIDE [Concomitant]
     Dosage: 30MG, 2 TABS BD
     Route: 048
  11. DIAZEPAM [Concomitant]
     Dosage: TAB QD AT NIGHT
     Route: 048
  12. SENOKOT [Concomitant]
     Dosage: 7.5MG, 2 TABS QD
     Route: 048

REACTIONS (2)
  - HYPERCALCAEMIA [None]
  - MOUTH ULCERATION [None]
